FAERS Safety Report 7399609-5 (Version None)
Quarter: 2011Q2

REPORT INFORMATION
  Report Type: 
  Country: None (occurrence: None)
  Receive Date: 20110407
  Receipt Date: 20110224
  Transmission Date: 20111010
  Serious: Yes (Hospitalization, Disabling, Other)
  Sender: FDA-Public Use
  Company Number: US-BAYER-2011-003477

PATIENT
  Sex: Female
  Weight: 104 kg

DRUGS (7)
  1. MULTIPLE VITAMINS [Concomitant]
     Route: 048
  2. FLUCONAZOLE [Concomitant]
     Dosage: 150 MG, ONCE
     Route: 048
     Dates: start: 20080403
  3. AMOXICILLIN [Concomitant]
     Dosage: 500 MG, TID
     Route: 048
     Dates: start: 20080107
  4. YAZ [Suspect]
     Indication: DYSFUNCTIONAL UTERINE BLEEDING
  5. NYSTATIN W/TRIAMCINOLONE [NYSTATIN,TRIAMCINOLONE] [Concomitant]
     Dosage: 30 MG, TID
     Route: 061
     Dates: start: 20080403
  6. YAZ [Suspect]
     Indication: CONTRACEPTION
     Dosage: 1 DF, QD
     Dates: start: 20060801, end: 20090101
  7. PROTONIX [Concomitant]
     Dosage: 40 MG, QD
     Dates: start: 20081225

REACTIONS (7)
  - PAIN [None]
  - DISABILITY [None]
  - CHOLECYSTITIS CHRONIC [None]
  - INJURY [None]
  - DEFORMITY [None]
  - CHOLELITHIASIS [None]
  - GALLBLADDER DISORDER [None]
